FAERS Safety Report 23457381 (Version 3)
Quarter: 2024Q1

REPORT INFORMATION
  Report Type: Spontaneous
  Country: US (occurrence: US)
  Receive Date: 20240130
  Receipt Date: 20240222
  Transmission Date: 20240409
  Serious: Yes (Other)
  Sender: FDA-Public Use
  Company Number: US-AMGEN-USASP2024015991

PATIENT
  Age: 75 Year
  Sex: Female
  Weight: 89.9 kg

DRUGS (9)
  1. NEULASTA [Suspect]
     Active Substance: PEGFILGRASTIM
     Indication: Prophylaxis
     Dosage: UNK
     Route: 058
  2. NEULASTA [Suspect]
     Active Substance: PEGFILGRASTIM
     Dosage: UNK
     Route: 058
  3. TAXOL [Concomitant]
     Active Substance: PACLITAXEL
     Dosage: UNK UNK, QWK
     Dates: start: 20231023
  4. CARBOPLATIN [Concomitant]
     Active Substance: CARBOPLATIN
     Dosage: UNK UNK, Q3WK
     Dates: start: 20231023
  5. KEYTRUDA [Concomitant]
     Active Substance: PEMBROLIZUMAB
     Dosage: UNK UNK, Q3WK
     Dates: start: 20231023
  6. ADRIAMYCIN [Concomitant]
     Active Substance: DOXORUBICIN HYDROCHLORIDE
     Dosage: 118 MILLIGRAM
     Dates: start: 20231227
  7. CYCLOPHOSPHAMIDE [Concomitant]
     Active Substance: CYCLOPHOSPHAMIDE
     Dosage: 1170 MILLIGRAM, Q3WK X 4
  8. CYTOXAN [Concomitant]
     Active Substance: CYCLOPHOSPHAMIDE
     Dosage: UNK
     Dates: start: 20231227
  9. PANTOPRAZOLE [Concomitant]
     Active Substance: PANTOPRAZOLE
     Dosage: 40 MILLIGRAM, QD

REACTIONS (22)
  - Neuropathy peripheral [Unknown]
  - Neutropenia [Unknown]
  - Hypothyroidism [Unknown]
  - Device occlusion [Unknown]
  - Fatigue [Not Recovered/Not Resolved]
  - Pain [Not Recovered/Not Resolved]
  - Nausea [Recovering/Resolving]
  - Brain fog [Not Recovered/Not Resolved]
  - Epistaxis [Not Recovered/Not Resolved]
  - Dehydration [Unknown]
  - Tachycardia [Unknown]
  - Flushing [Unknown]
  - Cognitive disorder [Unknown]
  - Mood altered [Unknown]
  - Tearfulness [Unknown]
  - Anxiety [Unknown]
  - Tremor [Unknown]
  - Rash [Unknown]
  - Skin lesion [Unknown]
  - Incision site erythema [Unknown]
  - Gastritis [Unknown]
  - Eastern Cooperative Oncology Group performance status worsened [Unknown]

NARRATIVE: CASE EVENT DATE: 20240118
